FAERS Safety Report 11098852 (Version 2)
Quarter: 2015Q2

REPORT INFORMATION
  Report Type: Spontaneous
  Country: KR (occurrence: KR)
  Receive Date: 20150508
  Receipt Date: 20150612
  Transmission Date: 20150821
  Serious: No
  Sender: FDA-Public Use
  Company Number: KR-ROCHE-1573800

PATIENT
  Age: 5 Year
  Sex: Male

DRUGS (2)
  1. MABTHERA [Suspect]
     Active Substance: RITUXIMAB
     Indication: FACTOR VIII DEFICIENCY
     Route: 042
  2. MABTHERA [Suspect]
     Active Substance: RITUXIMAB
     Route: 042
     Dates: end: 20140227

REACTIONS (7)
  - Otitis media [Recovered/Resolved]
  - Immunoglobulins decreased [Unknown]
  - Pyrexia [Unknown]
  - B-lymphocyte count decreased [Recovering/Resolving]
  - Sinusitis [Recovered/Resolved]
  - Off label use [Unknown]
  - Lymphadenitis [Unknown]
